FAERS Safety Report 4605737-7 (Version None)
Quarter: 2005Q1

REPORT INFORMATION
  Report Type: 
  Country: None (occurrence: None)
  Receive Date: 20050214
  Receipt Date: 20041221
  Transmission Date: 20050727
  Serious: No
  Sender: FDA-Public Use
  Company Number: USA041286753

PATIENT
  Age: 54 Year
  Sex: Male

DRUGS (2)
  1. CIALIS [Suspect]
     Dosage: 20 MG AS NEEDED
     Dates: start: 20041220
  2. ZOCOR (SIMVASTATIN RATIOPHARM) [Concomitant]

REACTIONS (1)
  - DRUG EFFECT DECREASED [None]
